FAERS Safety Report 6694304-X (Version None)
Quarter: 2010Q2

REPORT INFORMATION
  Report Type: 
  Country: None (occurrence: None)
  Receive Date: 20100423
  Receipt Date: 20100415
  Transmission Date: 20101027
  Serious: Yes (Other)
  Sender: FDA-Public Use
  Company Number: US-ABBOTT-10P-163-0632497-00

PATIENT
  Sex: Female
  Weight: 39.498 kg

DRUGS (2)
  1. HUMIRA [Suspect]
     Indication: CROHN'S DISEASE
     Dates: start: 20100116
  2. MULTI-VITAMIN [Concomitant]
     Indication: SUPPLEMENTATION THERAPY

REACTIONS (9)
  - DIPLOPIA [None]
  - HEADACHE [None]
  - HYPOPHAGIA [None]
  - INJECTION SITE ERYTHEMA [None]
  - INJECTION SITE PAPULE [None]
  - NAUSEA [None]
  - PAPILLOEDEMA [None]
  - VISION BLURRED [None]
  - VITH NERVE PARALYSIS [None]
